FAERS Safety Report 8874563 (Version 1)
Quarter: 2012Q4

REPORT INFORMATION
  Report Type: 
  Country: US (occurrence: US)
  Receive Date: 20121023
  Receipt Date: 20121023
  Transmission Date: 20130627
  Serious: No
  Sender: FDA-Public Use
  Company Number: US-ASTRAZENECA-2012SE77844

PATIENT
  Age: 47 Year
  Sex: Female

DRUGS (5)
  1. ATENOLOL [Suspect]
     Route: 048
     Dates: start: 20120827
  2. LISINOPRIL HCT [Suspect]
     Indication: BLOOD PRESSURE ABNORMAL
     Dosage: 20-25 MG ONE TABLET PER DAY
     Route: 048
     Dates: start: 20120730
  3. CYMBALTA [Concomitant]
  4. LEVOTHYROXINE [Concomitant]
  5. SERTRALINE [Concomitant]

REACTIONS (4)
  - Dysuria [Unknown]
  - Neck pain [Unknown]
  - Arthralgia [Unknown]
  - Dermatitis [Unknown]
